FAERS Safety Report 21026358 (Version 1)
Quarter: 2022Q2

REPORT INFORMATION
  Report Type: Spontaneous
  Country: US (occurrence: US)
  Receive Date: 20220630
  Receipt Date: 20220630
  Transmission Date: 20220721
  Serious: Yes (Hospitalization)
  Sender: FDA-Public Use
  Company Number: US-LEO Pharma-343642

PATIENT
  Age: 69 Year
  Sex: Male

DRUGS (14)
  1. LORATADINE [Concomitant]
     Active Substance: LORATADINE
     Indication: Product used for unknown indication
     Dosage: DOSAGE : 10 MG TABLET
  2. ELIQUIS [Concomitant]
     Active Substance: APIXABAN
     Indication: Product used for unknown indication
     Dosage: DOSAGE : 2.5 MG TABLET
  3. FLECAINIDE ACETATE [Concomitant]
     Active Substance: FLECAINIDE ACETATE
     Indication: Product used for unknown indication
     Dosage: DOSAGE : 100 MG TABLET
  4. COENZYME Q10 [Concomitant]
     Active Substance: DIETARY SUPPLEMENT\UBIDECARENONE
     Indication: Product used for unknown indication
     Dosage: DOSAGE : 50 MG TAB CHEW
  5. ASPIRIN [Concomitant]
     Active Substance: ASPIRIN
     Indication: Product used for unknown indication
     Dosage: DOSAGE : 81 MG TAB CHEW
  6. VITAMIN E [Concomitant]
     Active Substance: .ALPHA.-TOCOPHEROL
     Indication: Product used for unknown indication
     Dosage: DOSAGE : 180 MG CAPSULE
  7. probiotic and acidophilus [Concomitant]
     Indication: Product used for unknown indication
  8. ADBRY [Suspect]
     Active Substance: TRALOKINUMAB-LDRM
     Indication: Dermatitis atopic
     Dosage: 4 INJECTIONS (600 MG) FOR THE INITIAL DOSE ON 18-MAY-2022 THEN AT 2 INJECTIONS (300 MG) EVERY OTHER
     Dates: start: 20220518
  9. ADBRY [Suspect]
     Active Substance: TRALOKINUMAB-LDRM
     Indication: Dermatitis atopic
  10. ADBRY [Suspect]
     Active Substance: TRALOKINUMAB-LDRM
     Indication: Dermatitis atopic
     Dosage: 4 INJECTIONS (600 MG) FOR THE INITIAL DOSE ON 18-MAY-2022 THEN AT 2 INJECTIONS (300 MG) EVERY OTHER
     Dates: start: 20220518
  11. ADBRY [Suspect]
     Active Substance: TRALOKINUMAB-LDRM
     Indication: Dermatitis atopic
  12. B12 ACTIVE [Concomitant]
     Indication: Product used for unknown indication
     Dosage: DOSAGE : 100 MCG TAB CHEW
  13. DEVICE [Suspect]
     Active Substance: DEVICE
     Indication: Dermatitis atopic
  14. ROSUVASTATIN CALCIUM [Concomitant]
     Active Substance: ROSUVASTATIN CALCIUM
     Indication: Product used for unknown indication
     Dosage: DOSAGE : 10 MG TABLET

REACTIONS (2)
  - Respiratory disorder [Unknown]
  - Respiratory disorder [Unknown]

NARRATIVE: CASE EVENT DATE: 20220620
